FAERS Safety Report 8376918-4 (Version None)
Quarter: 2012Q2

REPORT INFORMATION
  Report Type: 
  Country: None (occurrence: None)
  Receive Date: 20120522
  Receipt Date: 20120516
  Transmission Date: 20120825
  Serious: Yes (Death)
  Sender: FDA-Public Use
  Company Number: US-JNJFOC-20120514384

PATIENT
  Sex: Female

DRUGS (3)
  1. DOXIL [Suspect]
     Indication: OVARIAN CANCER
     Route: 042
     Dates: start: 20110101, end: 20110101
  2. DOXIL [Suspect]
     Route: 042
     Dates: start: 20110101, end: 20110101
  3. TOPOTECAN [Suspect]
     Indication: OVARIAN CANCER
     Route: 065
     Dates: start: 20110101

REACTIONS (6)
  - CHOLELITHIASIS [None]
  - VOMITING [None]
  - DEATH [None]
  - DRUG DOSE OMISSION [None]
  - OVARIAN CANCER RECURRENT [None]
  - NAUSEA [None]
